FAERS Safety Report 11164247 (Version 2)
Quarter: 2015Q3

REPORT INFORMATION
  Report Type: Spontaneous
  Country: US (occurrence: US)
  Receive Date: 20150604
  Receipt Date: 20150728
  Transmission Date: 20151125
  Serious: Yes (Other)
  Sender: FDA-Public Use
  Company Number: US-PFIZER INC-2015169123

PATIENT
  Age: 90 Year
  Sex: Female
  Weight: 62 kg

DRUGS (2)
  1. FUROSEMIDE. [Concomitant]
     Active Substance: FUROSEMIDE
     Dosage: 40 MG, UNK
  2. TIKOSYN [Suspect]
     Active Substance: DOFETILIDE
     Indication: CARDIAC FIBRILLATION
     Dosage: 2X/DAY
     Dates: start: 201502

REACTIONS (2)
  - Cystitis [Unknown]
  - Klebsiella infection [Not Recovered/Not Resolved]

NARRATIVE: CASE EVENT DATE: 2015
